FAERS Safety Report 14947635 (Version 3)
Quarter: 2018Q3

REPORT INFORMATION
  Report Type: Spontaneous
  Country: US (occurrence: US)
  Receive Date: 20180529
  Receipt Date: 20180720
  Transmission Date: 20181010
  Serious: No
  Sender: FDA-Public Use
  Company Number: US-BAYER-2018-097917

PATIENT
  Age: 23 Year
  Sex: Female

DRUGS (2)
  1. SKYLA [Suspect]
     Active Substance: LEVONORGESTREL
     Indication: CONTRACEPTION
  2. SKYLA [Suspect]
     Active Substance: LEVONORGESTREL
     Indication: INTRA-UTERINE CONTRACEPTIVE DEVICE INSERTION
     Dosage: 14 MCG/24HR, CONT
     Route: 015
     Dates: start: 20180420, end: 20180509

REACTIONS (2)
  - Procedural pain [None]
  - Device expulsion [None]

NARRATIVE: CASE EVENT DATE: 20180427
